FAERS Safety Report 9165256 (Version 1)
Quarter: 2013Q1

REPORT INFORMATION
  Report Type: Spontaneous
  Country: US (occurrence: US)
  Receive Date: 20130315
  Receipt Date: 20130315
  Transmission Date: 20140127
  Serious: Yes (Other)
  Sender: FDA-Public Use
  Company Number: US-PURDUE-USA-2013-0099683

PATIENT
  Sex: Female

DRUGS (6)
  1. MS CONTIN TABLETS [Suspect]
     Indication: PAIN
     Dosage: 60 MG, Q12H
     Route: 048
  2. MORPHINE SULFATE [Suspect]
     Indication: PAIN
     Dosage: 30 MG, Q4- 6H
     Route: 048
  3. NEURONTIN [Suspect]
     Indication: NEURALGIA
     Dosage: UNK
     Route: 048
  4. VALIUM                             /00017001/ [Suspect]
     Indication: MUSCLE SPASTICITY
     Dosage: UNK
     Route: 048
  5. ULTRAM [Suspect]
     Indication: PAIN
     Dosage: UNK
     Route: 048
  6. TYLENOL [Suspect]
     Indication: PAIN
     Route: 048

REACTIONS (2)
  - Surgery [Unknown]
  - Drug effect decreased [Unknown]
